FAERS Safety Report 5694539-9 (Version None)
Quarter: 2008Q2

REPORT INFORMATION
  Report Type: 
  Country: None (occurrence: None)
  Receive Date: 20080404
  Receipt Date: 20080326
  Transmission Date: 20081010
  Serious: Yes (Death, Hospitalization)
  Sender: FDA-Public Use
  Company Number: JP-AVENTIS-200810668JP

PATIENT
  Age: 60 Year
  Sex: Male

DRUGS (4)
  1. LANTUS [Suspect]
     Dosage: DOSE: 30 UNITS
     Route: 058
     Dates: start: 20040327
  2. OPTICLIK (INSULIN INJECTION PEN) [Suspect]
  3. NOVORAPID [Concomitant]
     Dosage: DOSE: 18 UNITS
     Route: 058
     Dates: start: 20040324
  4. MERCAZOLE [Concomitant]
     Dosage: DOSE: 1 TABLET
     Route: 048
     Dates: start: 20000603, end: 20080101

REACTIONS (2)
  - HYPOGLYCAEMIA [None]
  - SUDDEN DEATH [None]
